FAERS Safety Report 19455612 (Version 1)
Quarter: 2021Q2

REPORT INFORMATION
  Report Type: Spontaneous
  Country: GB (occurrence: GB)
  Receive Date: 20210623
  Receipt Date: 20210623
  Transmission Date: 20210717
  Serious: Yes (Hospitalization, Other)
  Sender: FDA-Public Use
  Company Number: GB-BAXTER-2021BAX016813

PATIENT
  Sex: Female

DRUGS (5)
  1. CYCLOPHOSPHAMIDE INJECTION 1G [Suspect]
     Active Substance: CYCLOPHOSPHAMIDE
     Indication: ANGIOIMMUNOBLASTIC T-CELL LYMPHOMA
     Dosage: CHOP/CHOEP CHEMOTHERAPY: CHOP X CYCLE 1, CHOEP CYCLE (2 + 3), CHOP CYCLES 4?6.
     Route: 065
  2. ETOPOSIDE. [Suspect]
     Active Substance: ETOPOSIDE
     Indication: ANGIOIMMUNOBLASTIC T-CELL LYMPHOMA
     Dosage: CHOEP CYCLE2 + 3
     Route: 065
  3. PREDNISONE. [Suspect]
     Active Substance: PREDNISONE
     Indication: ANGIOIMMUNOBLASTIC T-CELL LYMPHOMA
     Dosage: CHOP/CHOEP CHEMOTHERAPY: CHOP X CYCLE 1, CHOEP CYCLE (2 + 3), CHOP CYCLES 4?6.
     Route: 065
  4. VINCRISTINE SULFATE. [Suspect]
     Active Substance: VINCRISTINE SULFATE
     Indication: ANGIOIMMUNOBLASTIC T-CELL LYMPHOMA
     Dosage: CHOP/CHOEP CHEMOTHERAPY: CHOP X CYCLE 1, CHOEP CYCLE (2 + 3), CHOP CYCLES 4?6.
     Route: 065
  5. DOXIL [Suspect]
     Active Substance: DOXORUBICIN HYDROCHLORIDE
     Indication: ANGIOIMMUNOBLASTIC T-CELL LYMPHOMA
     Dosage: CHOP/CHOEP CHEMOTHERAPY: CHOP X CYCLE 1, CHOEP CYCLE (2 + 3), CHOP CYCLES 4?6.
     Route: 065

REACTIONS (6)
  - Transfusion-related circulatory overload [Unknown]
  - Traumatic haematoma [Unknown]
  - Acute kidney injury [Unknown]
  - Neutropenic sepsis [Unknown]
  - Fall [Unknown]
  - Epistaxis [Unknown]
